FAERS Safety Report 5584641-4 (Version None)
Quarter: 2008Q1

REPORT INFORMATION
  Report Type: 
  Country: None (occurrence: None)
  Receive Date: 20080103
  Receipt Date: 20071227
  Transmission Date: 20080703
  Serious: Yes (Life-Threatening, Other)
  Sender: FDA-Public Use
  Company Number: 083-C5013-07121485

PATIENT
  Age: 72 Year
  Sex: Female
  Weight: 69 kg

DRUGS (7)
  1. CC-5013 (LENALIDOMIDE) (CAPSULES) [Suspect]
     Indication: MULTIPLE MYELOMA
     Dosage: 25 MG, DAILY, ORAL
     Route: 048
     Dates: start: 20071130, end: 20071214
  2. LASITONE (OSYROL-LASIX) [Concomitant]
  3. XALATAN [Concomitant]
  4. RABEPRAZOLE SODIUM [Concomitant]
  5. LEVOXACIN (LEVOFLOXACIN) (CAPSULES) [Concomitant]
  6. ENOXAPARIN SODIUM [Concomitant]
  7. ACYCLOVIR [Concomitant]

REACTIONS (3)
  - ATRIAL FIBRILLATION [None]
  - CARDIAC FAILURE CONGESTIVE [None]
  - CONDITION AGGRAVATED [None]
